FAERS Safety Report 4751404-9 (Version None)
Quarter: 2005Q3

REPORT INFORMATION
  Report Type: 
  Country: None (occurrence: None)
  Receive Date: 20050823
  Receipt Date: 20050823
  Transmission Date: 20060218
  Serious: Yes (Other)
  Sender: FDA-Public Use
  Company Number: None

PATIENT
  Age: 52 Year
  Sex: Female

DRUGS (3)
  1. WINRHO [Suspect]
     Indication: IDIOPATHIC THROMBOCYTOPENIC PURPURA
     Dosage: 540 MG  IVP  1X
     Route: 042
     Dates: start: 20050725
  2. WINRHO [Suspect]
  3. NORMAL SALINE FOR INJECTION [Concomitant]

REACTIONS (1)
  - INFUSION SITE PAIN [None]
